FAERS Safety Report 5231405-7 (Version None)
Quarter: 2007Q1

REPORT INFORMATION
  Report Type: 
  Country: None (occurrence: None)
  Receive Date: 20070202
  Receipt Date: 20070119
  Transmission Date: 20070707
  Serious: Yes (Death)
  Sender: FDA-Public Use
  Company Number: 096

PATIENT
  Sex: Male

DRUGS (1)
  1. FAZACLO ODT [Suspect]
     Dosage: 500 MG PO DAILY
     Route: 048
     Dates: start: 20050614, end: 20070112

REACTIONS (1)
  - MYOCARDIAL INFARCTION [None]
